FAERS Safety Report 11509978 (Version 1)
Quarter: 2015Q3

REPORT INFORMATION
  Report Type: Spontaneous
  Country: US (occurrence: US)
  Receive Date: 20150915
  Receipt Date: 20150915
  Transmission Date: 20151125
  Serious: No
  Sender: FDA-Public Use
  Company Number: US-JNJFOC-20150800495

PATIENT
  Sex: Female
  Weight: 81.65 kg

DRUGS (1)
  1. SUDAFED 12 HOUR [Suspect]
     Active Substance: PSEUDOEPHEDRINE HYDROCHLORIDE
     Indication: PAIN PROPHYLAXIS
     Route: 048

REACTIONS (3)
  - Product use issue [Unknown]
  - Product expiration date issue [Unknown]
  - Product packaging issue [Unknown]
